FAERS Safety Report 9664246 (Version 3)
Quarter: 2013Q4

REPORT INFORMATION
  Report Type: Spontaneous
  Country: US (occurrence: US)
  Receive Date: 20131101
  Receipt Date: 20131203
  Transmission Date: 20140711
  Serious: Yes (Hospitalization)
  Sender: FDA-Public Use
  Company Number: US-BAYER-2013-045340

PATIENT
  Age: 36 Year
  Sex: Female
  Weight: 50.79 kg

DRUGS (14)
  1. MIRENA [Suspect]
     Indication: CONTRACEPTION
     Dosage: 20 MCG/24HR, CONT
     Route: 015
     Dates: start: 20130227, end: 20130228
  2. NEXIUM [Concomitant]
     Dosage: 40 MG, UNK
     Route: 048
  3. WELLBUTRIN [Concomitant]
     Dosage: 150 MG, UNK
     Route: 048
  4. ZOLOFT [Concomitant]
     Dosage: 12.5 MG, UNK
     Route: 048
  5. ZOFRAN [Concomitant]
     Dosage: 4 MG, UNK
     Route: 048
  6. DOMPERIDONE [Concomitant]
     Dosage: 10 MG, UNK
     Route: 048
  7. BENADRYL [Concomitant]
     Dosage: 25 MG, UNK
     Route: 048
  8. TYLENOL [PARACETAMOL] [Concomitant]
     Dosage: 650 MG, UNK
     Route: 048
  9. HYOSCYAMINE [Concomitant]
     Dosage: 0.125 MG, UNK
     Route: 048
  10. MVI [Concomitant]
     Route: 048
  11. CALCIUM [Concomitant]
     Route: 048
  12. IMITREX [Concomitant]
  13. HYDROMORPHONE [Concomitant]
     Route: 048
  14. ONDANSETRON [Concomitant]
     Route: 048

REACTIONS (9)
  - Uterine perforation [None]
  - Device dislocation [None]
  - Medical device pain [None]
  - Pelvic pain [None]
  - Abdominal pain lower [None]
  - Injury [None]
  - Procedural pain [None]
  - Emotional distress [None]
  - Anxiety [None]
